FAERS Safety Report 9514354 (Version 1)
Quarter: 2013Q3

REPORT INFORMATION
  Report Type: Spontaneous
  Country: US (occurrence: US)
  Receive Date: 20130911
  Receipt Date: 20130911
  Transmission Date: 20140515
  Serious: No
  Sender: FDA-Public Use
  Company Number: US-009507513-1309USA002601

PATIENT
  Sex: Female

DRUGS (4)
  1. JANUVIA [Suspect]
     Dosage: UNK
     Route: 048
  2. BYDUREON [Suspect]
     Indication: TYPE 2 DIABETES MELLITUS
     Dosage: 2 MG, QW, SYRINGE
     Route: 058
     Dates: start: 201301
  3. GLUCOPHAGE [Concomitant]
  4. BENCLART [Concomitant]

REACTIONS (11)
  - Injection site discolouration [Not Recovered/Not Resolved]
  - Skin induration [Not Recovered/Not Resolved]
  - Injection site pruritus [Recovered/Resolved]
  - Weight decreased [Unknown]
  - Injection site nodule [Unknown]
  - Injection site erythema [Unknown]
  - Nervousness [Unknown]
  - Lethargy [Unknown]
  - Decreased appetite [Not Recovered/Not Resolved]
  - Blood glucose decreased [Unknown]
  - Headache [Unknown]
